FAERS Safety Report 24212025 (Version 1)
Quarter: 2024Q3

REPORT INFORMATION
  Report Type: Spontaneous
  Country: US (occurrence: US)
  Receive Date: 20240815
  Receipt Date: 20240815
  Transmission Date: 20241016
  Serious: No
  Sender: ABBVIE
  Company Number: US-ABBVIE-5871895

PATIENT
  Sex: Male
  Weight: 75 kg

DRUGS (44)
  1. HUMIRA [Suspect]
     Active Substance: ADALIMUMAB
     Indication: Rheumatoid arthritis
     Dosage: FORM STRENGTH: 40MG
     Route: 058
     Dates: start: 202203
  2. HUMIRA [Suspect]
     Active Substance: ADALIMUMAB
     Indication: Ankylosing spondylitis
  3. LIPITOR [Concomitant]
     Active Substance: ATORVASTATIN CALCIUM
     Indication: Blood cholesterol increased
  4. MULLEIN [Concomitant]
     Indication: Supplementation therapy
  5. LYRICA [Concomitant]
     Active Substance: PREGABALIN
     Indication: Pain
  6. FLUOROMETHOLONE [Concomitant]
     Active Substance: FLUOROMETHOLONE
     Indication: Iritis
  7. Black Seed Oil [Concomitant]
     Indication: Supplementation therapy
  8. MAGNESIUM [Concomitant]
     Active Substance: MAGNESIUM
     Indication: Mineral supplementation
  9. UNSPECIFIED INGREDIENT [Concomitant]
     Active Substance: UNSPECIFIED INGREDIENT
     Indication: Supplementation therapy
  10. ALPHA LIPOIC ACID [Concomitant]
     Active Substance: .ALPHA.-LIPOIC ACID
     Indication: Supplementation therapy
  11. HUMAN SERUM, NORMAL [Concomitant]
     Active Substance: HUMAN SERUM, NORMAL
     Indication: Iritis
  12. GINKGO [Concomitant]
     Active Substance: GINKGO
     Indication: Supplementation therapy
  13. POTASSIUM [Concomitant]
     Active Substance: POTASSIUM
     Indication: Mineral supplementation
  14. ACETAMINOPHEN [Concomitant]
     Active Substance: ACETAMINOPHEN
     Indication: Pain
  15. PEPCID [Concomitant]
     Active Substance: FAMOTIDINE
     Indication: Gastrooesophageal reflux disease
  16. EPIPEN [Concomitant]
     Active Substance: EPINEPHRINE
     Indication: Hypersensitivity
  17. PREBIOTICS NOS [Concomitant]
     Indication: Nutritional supplementation
     Dosage: POSTBIOTIC GEL CAPSULE
  18. ZTLIDO [Concomitant]
     Active Substance: LIDOCAINE
     Indication: Pain
     Dosage: PATCH
  19. COENZYME Q10 [Concomitant]
     Active Substance: DIETARY SUPPLEMENT\UBIDECARENONE
     Indication: Enzyme supplementation
  20. IRON [Concomitant]
     Active Substance: IRON
     Indication: Mineral supplementation
  21. DIETARY SUPPLEMENT [Concomitant]
     Active Substance: DIETARY SUPPLEMENT
     Indication: Nutritional supplementation
  22. LIDOCAINE [Concomitant]
     Active Substance: LIDOCAINE
     Indication: Pain
  23. LUTEIN [Concomitant]
     Active Substance: LUTEIN
     Indication: Supplementation therapy
  24. IPRATROPIUM [Concomitant]
     Active Substance: IPRATROPIUM
     Indication: Multiple allergies
  25. VITAMIN B-COMPLEX [Concomitant]
     Active Substance: DEXPANTHENOL\NIACINAMIDE\PYRIDOXINE HYDROCHLORIDE\RIBOFLAVIN 5^-PHOSPHATE SODIUM\THIAMINE HYDROCHLOR
     Indication: Vitamin supplementation
  26. MELOXICAM [Concomitant]
     Active Substance: MELOXICAM
     Indication: Rheumatoid arthritis
  27. DIETARY SUPPLEMENT\HERBALS\MILK THISTLE [Concomitant]
     Active Substance: MILK THISTLE
     Indication: Supplementation therapy
  28. EXTRA OMEGA 3 [Concomitant]
     Indication: Nutritional supplementation
     Dosage: EPA
  29. TIZANIDINE [Concomitant]
     Active Substance: TIZANIDINE
     Indication: Muscle spasms
  30. OXYCODONE [Concomitant]
     Active Substance: OXYCODONE
     Indication: Pain
  31. NARCAN [Concomitant]
     Active Substance: NALOXONE HYDROCHLORIDE
     Indication: Overdose
  32. VITAMIN C [Concomitant]
     Active Substance: ASCORBIC ACID
     Indication: Vitamin supplementation
  33. LAMISIL [Concomitant]
     Active Substance: TERBINAFINE HYDROCHLORIDE
     Indication: Fungal infection
  34. VITAMIN E [Concomitant]
     Active Substance: .ALPHA.-TOCOPHEROL
     Indication: Vitamin supplementation
  35. VITAMIN A [Concomitant]
     Active Substance: VITAMIN A
     Indication: Vitamin supplementation
  36. ALBUTEROL [Concomitant]
     Active Substance: ALBUTEROL
     Indication: Multiple allergies
     Dosage: INHALER
  37. ZYRTEC [Concomitant]
     Active Substance: CETIRIZINE HYDROCHLORIDE
     Indication: Multiple allergies
  38. CANNABIS SATIVA SUBSP. INDICA TOP [Concomitant]
     Active Substance: CANNABIS SATIVA SUBSP. INDICA TOP
     Indication: Anxiety
     Dosage: MEDICAL
  39. DESONIDE [Concomitant]
     Active Substance: DESONIDE
     Indication: Multiple allergies
  40. QUERCETIN [Concomitant]
     Active Substance: QUERCETIN
     Indication: Supplementation therapy
  41. FLAXSEED [Concomitant]
     Active Substance: FLAX SEED
     Indication: Nutritional supplementation
  42. BACLOFEN [Concomitant]
     Active Substance: BACLOFEN
     Indication: Muscle spasms
  43. VITAMIN D3 [Concomitant]
     Active Substance: CHOLECALCIFEROL
     Indication: Vitamin supplementation
  44. PROBIOTICS NOS [Concomitant]
     Active Substance: PROBIOTICS NOS
     Indication: Probiotic therapy

REACTIONS (7)
  - Pain in extremity [Not Recovered/Not Resolved]
  - Burning sensation [Not Recovered/Not Resolved]
  - Wrong technique in product usage process [Not Recovered/Not Resolved]
  - Injection site hypoaesthesia [Not Recovered/Not Resolved]
  - Product quality issue [Not Recovered/Not Resolved]
  - Nerve injury [Not Recovered/Not Resolved]
  - Injection site pain [Unknown]

NARRATIVE: CASE EVENT DATE: 20240101
